FAERS Safety Report 25221846 (Version 1)
Quarter: 2025Q2

REPORT INFORMATION
  Report Type: Spontaneous
  Country: US (occurrence: US)
  Receive Date: 20250421
  Receipt Date: 20250421
  Transmission Date: 20250717
  Serious: No
  Sender: SANOFI AVENTIS
  Company Number: US-SA-2025SA114528

PATIENT
  Sex: Male

DRUGS (3)
  1. DUPIXENT [Suspect]
     Active Substance: DUPILUMAB
     Indication: Dermatitis atopic
     Dosage: 300 MG, Q4W
     Route: 058
     Dates: start: 202302
  2. XOLAIR [Concomitant]
     Active Substance: OMALIZUMAB
     Indication: Food allergy
  3. XOLAIR [Concomitant]
     Active Substance: OMALIZUMAB
     Indication: Milk allergy

REACTIONS (1)
  - Skin hypopigmentation [Unknown]
